FAERS Safety Report 9917742 (Version 1)
Quarter: 2014Q1

REPORT INFORMATION
  Report Type: Spontaneous
  Country: US (occurrence: US)
  Receive Date: 20140221
  Receipt Date: 20140221
  Transmission Date: 20141002
  Serious: Yes (Other)
  Sender: FDA-Public Use
  Company Number: US-ACTAVIS-2014-02793

PATIENT
  Age: 70 Year
  Sex: Male
  Weight: 73 kg

DRUGS (3)
  1. GLIPIZIDE EXTENDED-RELEASE (WATSON LABORATORIES) [Suspect]
     Indication: DIABETES MELLITUS
     Dosage: 2 TABLETS IN THE MORNING AND 2 TABLETS IN THE EVENING
     Route: 065
  2. GLIPIZIDE EXTENDED-RELEASE (WATSON LABORATORIES) [Suspect]
     Dosage: 2 TABLETS IN THE MORNING AND 1 TABLET IN THE EVENING
     Route: 065
     Dates: start: 201305
  3. LASIX                              /00032601/ [Concomitant]
     Indication: PRODUCT USED FOR UNKNOWN INDICATION
     Dosage: UNK, UNKNOWN
     Route: 065
     Dates: start: 201401

REACTIONS (2)
  - Coronary artery occlusion [Not Recovered/Not Resolved]
  - Cardiac valve disease [Not Recovered/Not Resolved]
